FAERS Safety Report 7553704-6 (Version None)
Quarter: 2011Q2

REPORT INFORMATION
  Report Type: 
  Country: None (occurrence: None)
  Receive Date: 20110617
  Receipt Date: 20110609
  Transmission Date: 20111010
  Serious: Yes (Other)
  Sender: FDA-Public Use
  Company Number: FR-NOVOPROD-329852

PATIENT
  Age: 47 Year
  Sex: Female

DRUGS (11)
  1. PAROXETINE HCL [Concomitant]
  2. VICTOZA [Suspect]
     Dosage: 0.6 MG, QD
     Route: 058
     Dates: start: 20110325
  3. NEXIUM [Concomitant]
  4. VICTOZA [Suspect]
     Dosage: 3.6 MG, QD
     Route: 058
     Dates: start: 20110324, end: 20110324
  5. ATORVASTATIN CALCIUM [Concomitant]
  6. NOVORAPID [Concomitant]
  7. ATENOLOL [Concomitant]
  8. LANTUS [Concomitant]
  9. METFORMIN HCL [Concomitant]
  10. KARDEGIC [Concomitant]
  11. VICTOZA [Suspect]
     Indication: TYPE 2 DIABETES MELLITUS
     Dosage: 0.6 MG, QD
     Route: 058
     Dates: start: 20110323, end: 20110323

REACTIONS (3)
  - ACCIDENTAL OVERDOSE [None]
  - SOMNOLENCE [None]
  - NAUSEA [None]
